FAERS Safety Report 6586131-9 (Version None)
Quarter: 2010Q1

REPORT INFORMATION
  Report Type: 
  Country: None (occurrence: None)
  Receive Date: 20100217
  Receipt Date: 20090127
  Transmission Date: 20100710
  Serious: Yes (Other)
  Sender: FDA-Public Use
  Company Number: US-ALLERGAN-0815527US

PATIENT
  Age: 11 Year
  Sex: Female
  Weight: 43.1 kg

DRUGS (4)
  1. BOTOX [Suspect]
     Indication: MUSCLE SPASTICITY
     Dosage: 400 UNITS, SINGLE
     Route: 030
     Dates: start: 20081112, end: 20081112
  2. BOTOX [Suspect]
     Dosage: 400 UNITS, SINGLE
     Route: 030
     Dates: start: 20070829, end: 20070829
  3. TRILEPTAL [Concomitant]
     Indication: CONVULSION
  4. IBUPROFEN [Concomitant]
     Indication: PAIN

REACTIONS (3)
  - ASTHENIA [None]
  - DYSPHAGIA [None]
  - DYSPHONIA [None]
